FAERS Safety Report 16944859 (Version 8)
Quarter: 2023Q2

REPORT INFORMATION
  Report Type: Spontaneous
  Country: US (occurrence: US)
  Receive Date: 20191022
  Receipt Date: 20230424
  Transmission Date: 20230721
  Serious: No
  Sender: FDA-Public Use
  Company Number: US-AMGEN-USASP2019173769

PATIENT
  Age: 87 Year
  Sex: Female
  Weight: 92.517 kg

DRUGS (4)
  1. ENBREL [Suspect]
     Active Substance: ETANERCEPT
     Indication: Product used for unknown indication
     Dosage: UNK
     Route: 065
  2. METHOTREXATE SODIUM [Suspect]
     Active Substance: METHOTREXATE SODIUM
     Indication: Product used for unknown indication
     Dosage: UNK
     Route: 065
  3. ACTEMRA [Concomitant]
     Active Substance: TOCILIZUMAB
     Indication: Rheumatoid arthritis
     Dosage: UNK
     Dates: start: 20170220
  4. ACTEMRA [Concomitant]
     Active Substance: TOCILIZUMAB
     Dosage: 760 MILLIGRAM
     Dates: start: 20190920

REACTIONS (1)
  - Drug hypersensitivity [Unknown]
